FAERS Safety Report 7229101-X (Version None)
Quarter: 2011Q1

REPORT INFORMATION
  Report Type: 
  Country: None (occurrence: None)
  Receive Date: 20110117
  Receipt Date: 20110111
  Transmission Date: 20110831
  Serious: Yes (Other)
  Sender: FDA-Public Use
  Company Number: US-JNJFOC-20100703601

PATIENT
  Sex: Female

DRUGS (3)
  1. LEVAQUIN [Suspect]
     Indication: SINUSITIS
     Route: 048
  2. LEVAQUIN [Suspect]
     Indication: PRODUCT USED FOR UNKNOWN INDICATION
     Route: 048
  3. LEVAQUIN [Suspect]
     Indication: BRONCHITIS
     Route: 048

REACTIONS (6)
  - TENDONITIS [None]
  - TENDON RUPTURE [None]
  - JOINT SPRAIN [None]
  - RASH PRURITIC [None]
  - PRURITUS [None]
  - LIGAMENT SPRAIN [None]
